FAERS Safety Report 9797237 (Version 2)
Quarter: 2016Q2

REPORT INFORMATION
  Report Type: Report from Study
  Country: US (occurrence: US)
  Receive Date: 20140106
  Receipt Date: 20160412
  Transmission Date: 20160815
  Serious: Yes (Other)
  Sender: FDA-Public Use
  Company Number: US-ROCHE-1314844

PATIENT
  Sex: Male
  Weight: 70.37 kg

DRUGS (13)
  1. WARFARIN SODIUM. [Concomitant]
     Active Substance: WARFARIN SODIUM
  2. OCUFLOX (UNITED STATES) [Concomitant]
     Dosage: 1 DROP OD FOR 4 DAYS
     Route: 065
     Dates: start: 20101015, end: 20110105
  3. PROPARACAINE [Concomitant]
     Active Substance: PROPARACAINE
     Dosage: OU:  BOTH EYES
     Route: 065
  4. LUCENTIS [Suspect]
     Active Substance: RANIBIZUMAB
     Indication: NEOVASCULAR AGE-RELATED MACULAR DEGENERATION
     Route: 050
     Dates: start: 20060927
  5. FLECAINIDE ACETATE. [Concomitant]
     Active Substance: FLECAINIDE ACETATE
  6. ASPIRIN. [Concomitant]
     Active Substance: ASPIRIN
     Dosage: 81 MG
     Route: 065
  7. HYZAAR [Concomitant]
     Active Substance: HYDROCHLOROTHIAZIDE\LOSARTAN POTASSIUM
  8. PHENYLEPHRINE [Concomitant]
     Active Substance: PHENYLEPHRINE\PHENYLEPHRINE HYDROCHLORIDE
     Route: 065
  9. TROPICAMIDE. [Concomitant]
     Active Substance: TROPICAMIDE
     Dosage: OU BOTH EYES
     Route: 065
  10. AMIODARONE HYDROCHLORIDE. [Concomitant]
     Active Substance: AMIODARONE HYDROCHLORIDE
  11. FISH OIL [Concomitant]
     Active Substance: FISH OIL
  12. ZYMAR [Concomitant]
     Active Substance: GATIFLOXACIN
     Dosage: 1 DROP OD X 4 DAYS
     Route: 065
     Dates: start: 20060707, end: 20110105
  13. AVASTIN [Suspect]
     Active Substance: BEVACIZUMAB
     Indication: NEOVASCULAR AGE-RELATED MACULAR DEGENERATION
     Route: 065
     Dates: start: 20060601

REACTIONS (10)
  - Pollakiuria [Unknown]
  - Deafness [Unknown]
  - Dry eye [Unknown]
  - Cystoid macular oedema [Recovered/Resolved]
  - Off label use [Unknown]
  - Haematuria [Unknown]
  - Vitreous haemorrhage [Unknown]
  - Mood altered [Unknown]
  - Oedema [Unknown]
  - Micturition urgency [Unknown]
